FAERS Safety Report 14335571 (Version 1)
Quarter: 2017Q4

REPORT INFORMATION
  Report Type: Spontaneous
  Country: SE (occurrence: SE)
  Receive Date: 20171229
  Receipt Date: 20171229
  Transmission Date: 20180321
  Serious: Yes (Hospitalization)
  Sender: FDA-Public Use
  Company Number: SE-TEVA-2017-SE-836448

PATIENT
  Age: 60 Year
  Sex: Male

DRUGS (8)
  1. TROMBYL 75 MG TABLETT [Concomitant]
     Active Substance: ASPIRIN
     Route: 065
     Dates: start: 20171107
  2. ATORVASTATIN [Concomitant]
     Active Substance: ATORVASTATIN
     Route: 065
     Dates: start: 20171107
  3. RAMIPRIL. [Concomitant]
     Active Substance: RAMIPRIL
     Route: 065
     Dates: start: 20171107
  4. GLYTRIN 0,4 MG/DOS SUBLINGUALSPRAY [Concomitant]
     Dosage: 1-2 DOSER VID BEHOV
     Route: 065
     Dates: start: 20171107
  5. CLOPIDOGREL [Suspect]
     Active Substance: CLOPIDOGREL BISULFATE
     Route: 048
     Dates: start: 20171107
  6. SALURES 2,5 MG TABLETT [Concomitant]
     Active Substance: BENDROFLUMETHIAZIDE
     Route: 065
     Dates: start: 20170411
  7. CARVEDILOL AUROBINDO 6,25 MG FILMDRAGERAD TABLETT [Concomitant]
     Route: 065
     Dates: start: 20170410
  8. INSPRA 25 MG FILMDRAGERAD TABLETT [Concomitant]
     Route: 065
     Dates: start: 20170411

REACTIONS (1)
  - Rash pruritic [Recovered/Resolved]

NARRATIVE: CASE EVENT DATE: 20171109
